FAERS Safety Report 14329013 (Version 1)
Quarter: 2017Q4

REPORT INFORMATION
  Report Type: Spontaneous
  Country: ES (occurrence: ES)
  Receive Date: 20171227
  Receipt Date: 20171227
  Transmission Date: 20180321
  Serious: Yes (Hospitalization)
  Sender: FDA-Public Use
  Company Number: ES-PFIZER INC-2017546033

PATIENT
  Age: 38 Year
  Sex: Female

DRUGS (1)
  1. NOREPINEPHRINE BITARTRATE. [Suspect]
     Active Substance: NOREPINEPHRINE BITARTRATE
     Dosage: UNK
     Route: 042
     Dates: start: 20171101, end: 20171101

REACTIONS (4)
  - Medication error [Recovered/Resolved]
  - Intracranial pressure increased [Unknown]
  - Haemodynamic instability [Unknown]
  - Mydriasis [Unknown]

NARRATIVE: CASE EVENT DATE: 20171101
